FAERS Safety Report 5336981-1 (Version None)
Quarter: 2007Q2

REPORT INFORMATION
  Report Type: 
  Country: None (occurrence: None)
  Receive Date: 20070529
  Receipt Date: 20070523
  Transmission Date: 20071010
  Serious: Yes (Death, Hospitalization)
  Sender: FDA-Public Use
  Company Number: US-MERCK-0705USA04913

PATIENT
  Age: 78 Year
  Sex: Male

DRUGS (8)
  1. JANUVIA [Suspect]
     Route: 048
     Dates: start: 20070101
  2. COZAAR [Concomitant]
     Route: 048
  3. CRESTOR [Concomitant]
     Route: 065
  4. [THERAPY UNSPECIFIED] [Concomitant]
     Route: 065
  5. LASIX [Concomitant]
     Route: 065
  6. FOSAMAX [Concomitant]
     Route: 048
  7. PLAVIX [Concomitant]
     Route: 065
  8. ASPIRIN [Concomitant]
     Route: 065

REACTIONS (1)
  - MYOCARDIAL INFARCTION [None]
